FAERS Safety Report 5510678-7 (Version None)
Quarter: 2007Q4

REPORT INFORMATION
  Report Type: 
  Country: None (occurrence: None)
  Receive Date: 20071107
  Receipt Date: 20071023
  Transmission Date: 20080405
  Serious: Yes (Other)
  Sender: FDA-Public Use
  Company Number: 430085K07USA

PATIENT
  Age: 37 Year
  Sex: Male
  Weight: 87.0906 kg

DRUGS (2)
  1. NOVANTRONE [Suspect]
     Indication: MULTIPLE SCLEROSIS
     Dosage: 12 MG/M2, ONCE, INTRAVENOUS (NOT OTHERWISE SPECIFIED); 5 MG/M2, INTRAVENOUS (NOT OTHERWISE SPECIFIED
     Route: 042
     Dates: start: 20060710, end: 20060710
  2. NOVANTRONE [Suspect]
     Indication: MULTIPLE SCLEROSIS
     Dosage: 12 MG/M2, ONCE, INTRAVENOUS (NOT OTHERWISE SPECIFIED); 5 MG/M2, INTRAVENOUS (NOT OTHERWISE SPECIFIED
     Route: 042
     Dates: start: 20060101, end: 20061212

REACTIONS (1)
  - EJECTION FRACTION DECREASED [None]
